FAERS Safety Report 17910784 (Version 5)
Quarter: 2020Q3

REPORT INFORMATION
  Report Type: Other
  Country: CA (occurrence: CA)
  Receive Date: 20200618
  Receipt Date: 20200908
  Transmission Date: 20201103
  Serious: Yes (Other)
  Sender: FDA-Public Use
  Company Number: CA-ROCHE-2490897

PATIENT
  Sex: Male

DRUGS (14)
  1. OCREVUS [Suspect]
     Active Substance: OCRELIZUMAB
     Indication: PRIMARY PROGRESSIVE MULTIPLE SCLEROSIS
     Dosage: 300 MG AT DAY 0 AND 14
     Route: 042
     Dates: start: 20190416
  2. OCREVUS [Suspect]
     Active Substance: OCRELIZUMAB
     Dosage: 600 MG EVERY 6 MONTH
     Route: 042
     Dates: start: 20190416
  3. FAMPYRA [Concomitant]
     Active Substance: DALFAMPRIDINE
  4. OCUVITE [Concomitant]
     Active Substance: VITAMINS
  5. CHLOROQUINE. [Concomitant]
     Active Substance: CHLOROQUINE
  6. CALCIUM [Concomitant]
     Active Substance: CALCIUM
  7. BIOTIN [Concomitant]
     Active Substance: BIOTIN
  8. SOLU?MEDROL [Concomitant]
     Active Substance: METHYLPREDNISOLONE SODIUM SUCCINATE
     Route: 042
  9. SOLIFENACIN [Concomitant]
     Active Substance: SOLIFENACIN
  10. CANDESARTAN. [Concomitant]
     Active Substance: CANDESARTAN
  11. BACLOFEN. [Concomitant]
     Active Substance: BACLOFEN
  12. DEXILANT [Concomitant]
     Active Substance: DEXLANSOPRAZOLE
     Dosage: EVERY OTHER DAY ;ONGOING: YES
  13. ATORVASTATIN [Concomitant]
     Active Substance: ATORVASTATIN
     Dosage: EVERY OTHER DAY ;ONGOING: YES
  14. COENZYME Q10 [Concomitant]
     Active Substance: DIETARY SUPPLEMENT\UBIDECARENONE

REACTIONS (6)
  - Cellulitis [Recovering/Resolving]
  - Gait disturbance [Unknown]
  - Lymphocyte count decreased [Not Recovered/Not Resolved]
  - Visual impairment [Unknown]
  - Drug ineffective [Unknown]
  - Tinnitus [Unknown]
